FAERS Safety Report 7653944-1 (Version None)
Quarter: 2011Q3

REPORT INFORMATION
  Report Type: 
  Country: None (occurrence: None)
  Receive Date: 20110803
  Receipt Date: 20110722
  Transmission Date: 20111222
  Serious: Yes (Other)
  Sender: FDA-Public Use
  Company Number: US-JNJFOC-20110710433

PATIENT
  Sex: Female
  Weight: 77.11 kg

DRUGS (7)
  1. KLOR-CON [Concomitant]
     Indication: ELECTROLYTE SUBSTITUTION THERAPY
     Dates: start: 20090101
  2. MERCAPTOPURINE [Concomitant]
  3. WARFARIN [Concomitant]
  4. MIRTAZAPINE [Concomitant]
  5. METOPROLOL TARTRATE [Concomitant]
  6. TORSEMIDE [Concomitant]
  7. REMICADE [Suspect]
     Indication: CROHN'S DISEASE
     Route: 042
     Dates: start: 20100101

REACTIONS (2)
  - ANAL FISTULA [None]
  - DRUG INEFFECTIVE [None]
